FAERS Safety Report 5729557-5 (Version None)
Quarter: 2008Q2

REPORT INFORMATION
  Report Type: 
  Country: None (occurrence: None)
  Receive Date: 20080501
  Receipt Date: 20080421
  Transmission Date: 20081010
  Serious: Yes (Hospitalization)
  Sender: FDA-Public Use
  Company Number: B0518491C

PATIENT
  Sex: Male

DRUGS (12)
  1. LITHIUM CARBONATE [Suspect]
     Indication: POOR QUALITY SLEEP
     Dosage: 1.7 GRAM (S) PER DAY TRANSPLACENTARY
  2. ZANTAC [Suspect]
     Dosage: 50 MG SINGLE DOSE TRANNSPLACENTA
  3. OLANZAPINE [Suspect]
     Dosage: 20 MG AT NIGHT TRANSPLACENTARY
  4. CLONAZEPAM [Suspect]
     Dosage: .5 MG AT NIGHT TRANSPLACENTARY
  5. FOLIC ACID [Suspect]
     Dosage: 500 UG PER DAY TRANSPLACENTARY
  6. LACTULOSE [Suspect]
     Dosage: TRANSPLACENTARY
  7. THIOPENTAL SODIUM [Suspect]
     Dosage: 250 MG SINGLE DOSE TRANSPLACENTA
  8. METOCLOPRAMIDE [Suspect]
     Dosage: 10 MG SINGLE DOSE TRANSPLACENTA
  9. SODIUM CITRATE [Suspect]
     Dosage: 30 ML SINGLE DOSE TRANSPLACENTA
  10. SUXAMENTHONIUM (FORMULATION UNKNOWN) (SUCCINYLCHOLINE CHLORIDE) [Suspect]
     Dosage: 100 MG SINGLE DOSE TRANSPLACENTA
  11. ISOFLURANE [Suspect]
     Dosage: TRANSPLACENTARY
  12. HARTMANN'S SOLUTION (FORMULATION UNKNOWN) (HARTMANN'S SOLUTION) [Suspect]
     Dosage: 1 LITER SINGLE DOSE TRANSPLACENTA

REACTIONS (4)
  - CAESAREAN SECTION [None]
  - MATERNAL DRUGS AFFECTING FOETUS [None]
  - PREMATURE BABY [None]
  - THERAPEUTIC AGENT TOXICITY [None]
